FAERS Safety Report 24939987 (Version 1)
Quarter: 2025Q1

REPORT INFORMATION
  Report Type: Report from Study
  Country: CA (occurrence: CA)
  Receive Date: 20250207
  Receipt Date: 20250207
  Transmission Date: 20250409
  Serious: Yes (Hospitalization, Other)
  Sender: APOTEX
  Company Number: CA-APOTEX-2023AP008097

PATIENT
  Age: 60 Year
  Sex: Female

DRUGS (4)
  1. LENALIDOMIDE [Suspect]
     Active Substance: LENALIDOMIDE
     Indication: Plasma cell myeloma
     Dosage: 25 MILLIGRAM, QD (25MG DAILY FOR 21 DAYS FOLLOWED BY 1 WEEK OFF (CURRENTLY))
     Route: 048
     Dates: start: 20230413, end: 2023
  2. LENALIDOMIDE [Suspect]
     Active Substance: LENALIDOMIDE
     Indication: Plasma cell myeloma
     Dosage: 20 MILLIGRAM, QD
     Route: 048
     Dates: start: 202304, end: 202304
  3. LENALIDOMIDE [Suspect]
     Active Substance: LENALIDOMIDE
     Indication: Plasma cell myeloma
     Dosage: 5 MILLIGRAM, QD (TAKE 1 CAPSULE BY MOUTH ONCE DAILY)
     Route: 048
     Dates: start: 202304
  4. LENALIDOMIDE [Suspect]
     Active Substance: LENALIDOMIDE
     Dosage: 5 MILLIGRAM, QD (TAKE 1 CAPSULE BY MOUTH ONCE DAILY)
     Route: 048
     Dates: end: 202410

REACTIONS (6)
  - Plasma cell myeloma recurrent [Unknown]
  - Respiratory tract infection [Unknown]
  - Mental fatigue [Unknown]
  - Off label use [Unknown]
  - Somnolence [Unknown]
  - Fatigue [Unknown]

NARRATIVE: CASE EVENT DATE: 20230401
